FAERS Safety Report 5576755-X (Version None)
Quarter: 2007Q4

REPORT INFORMATION
  Report Type: 
  Country: None (occurrence: None)
  Receive Date: 20071228
  Receipt Date: 20071217
  Transmission Date: 20080405
  Serious: Yes (Hospitalization)
  Sender: FDA-Public Use
  Company Number: GB-BRISTOL-MYERS SQUIBB COMPANY-13959531

PATIENT
  Age: 59 Year
  Sex: Female
  Weight: 47 kg

DRUGS (8)
  1. IPILIMUMAB [Suspect]
     Indication: MALIGNANT MELANOMA
     Dosage: LAST DOSED ON 17-OCT-07
     Route: 042
     Dates: start: 20070808, end: 20071017
  2. PLACEBO [Suspect]
     Indication: MALIGNANT MELANOMA
     Dosage: LAST DOSED ON 17-OCT-07
     Route: 042
     Dates: start: 20070808, end: 20071017
  3. BMS734019 (MDX 1379) [Suspect]
     Indication: MALIGNANT MELANOMA
     Route: 042
     Dates: start: 20070808, end: 20070817
  4. LANSOPRAZOLE [Concomitant]
     Indication: ABDOMINAL PAIN UPPER
  5. SENNA [Concomitant]
     Indication: CONSTIPATION
     Route: 048
     Dates: start: 20070829
  6. MAGNESIUM [Concomitant]
     Indication: CONSTIPATION
     Route: 048
     Dates: start: 20070829
  7. MAXOLON [Concomitant]
     Indication: PROPHYLAXIS OF NAUSEA AND VOMITING
     Route: 048
     Dates: start: 20070806
  8. DOCUSATE SODIUM [Concomitant]
     Indication: CONSTIPATION
     Route: 048
     Dates: start: 20070822

REACTIONS (6)
  - ABDOMINAL PAIN [None]
  - DEHYDRATION [None]
  - LYMPHOPENIA [None]
  - NAUSEA [None]
  - NEUTROPENIA [None]
  - VOMITING [None]
